FAERS Safety Report 6141988-0 (Version None)
Quarter: 2009Q2

REPORT INFORMATION
  Report Type: 
  Country: None (occurrence: None)
  Receive Date: 20090402
  Receipt Date: 20090326
  Transmission Date: 20091009
  Serious: Yes (Hospitalization)
  Sender: FDA-Public Use
  Company Number: US-GILEAD-2009-0020988

PATIENT
  Sex: Female
  Weight: 93.978 kg

DRUGS (9)
  1. LETAIRIS [Suspect]
     Indication: PULMONARY ARTERIAL HYPERTENSION
     Route: 048
     Dates: start: 20090226, end: 20090319
  2. LASIX [Suspect]
     Indication: POLYURIA
  3. ZAROXOLYN [Suspect]
     Indication: POLYURIA
  4. LISINOPRIL [Concomitant]
  5. METOPROLOL [Concomitant]
  6. LOVASTATIN [Concomitant]
  7. POTASSIUM CHLORIDE [Concomitant]
  8. SYNTHROID [Concomitant]
  9. METFORMIN HCL [Concomitant]

REACTIONS (4)
  - DYSPNOEA [None]
  - OEDEMA [None]
  - RENAL FAILURE ACUTE [None]
  - WEIGHT INCREASED [None]
